FAERS Safety Report 6663672-7 (Version None)
Quarter: 2010Q1

REPORT INFORMATION
  Report Type: 
  Country: None (occurrence: None)
  Receive Date: 20100331
  Receipt Date: 20100331
  Transmission Date: 20100710
  Serious: Yes (Hospitalization)
  Sender: FDA-Public Use
  Company Number: None

PATIENT
  Age: 45 Year
  Sex: Female
  Weight: 43.9989 kg

DRUGS (1)
  1. BOTOX [Suspect]
     Indication: SKIN WRINKLING
     Dosage: DON'T KNOW
     Dates: start: 20091118, end: 20091118

REACTIONS (14)
  - ASTHENIA [None]
  - DYSPHAGIA [None]
  - EYE BURNS [None]
  - EYELID FUNCTION DISORDER [None]
  - FOREIGN BODY [None]
  - HEADACHE [None]
  - LOSS OF CONSCIOUSNESS [None]
  - MALNUTRITION [None]
  - MUSCLE DISORDER [None]
  - MUSCULOSKELETAL STIFFNESS [None]
  - PANIC ATTACK [None]
  - SKIN TIGHTNESS [None]
  - THROAT TIGHTNESS [None]
  - WEIGHT DECREASED [None]
